FAERS Safety Report 21259640 (Version 1)
Quarter: 2022Q3

REPORT INFORMATION
  Report Type: Spontaneous
  Country: JP (occurrence: JP)
  Receive Date: 20220826
  Receipt Date: 20220826
  Transmission Date: 20221027
  Serious: Yes (Hospitalization)
  Sender: FDA-Public Use
  Company Number: JP-ORGANON-O2208JPN001789

PATIENT
  Age: 71 Year
  Sex: Female

DRUGS (14)
  1. CARBIDOPA\LEVODOPA [Interacting]
     Active Substance: CARBIDOPA\LEVODOPA
     Dosage: 100 MG TABLETS TAKEN 6 TIMES A DAY; 1 TABLET AT 6:00, 1 TABLET AT 8:30, 1 TABLET AT 11:30, 1.5 TABLE
     Route: 048
  2. ENTACAPONE [Concomitant]
     Active Substance: ENTACAPONE
     Dosage: 500 MG PER DAY AT 6:00, 8:30, 11:30, 14:00, AND 20:00
  3. VONOPRAZAN [Concomitant]
     Active Substance: VONOPRAZAN
     Dosage: 20 MG PER DAY AT 8:30
  4. ISTRADEFYLLINE [Concomitant]
     Active Substance: ISTRADEFYLLINE
     Dosage: 40 MG PER DAY AT 8:30
  5. ZONISAMIDE [Concomitant]
     Active Substance: ZONISAMIDE
     Dosage: 50 MG PER DAY AT 8:30
  6. RASAGILINE MESYLATE [Concomitant]
     Active Substance: RASAGILINE MESYLATE
     Dosage: 1 MG PER DAY AT 8:30
  7. CLONAZEPAM [Concomitant]
     Active Substance: CLONAZEPAM
     Dosage: 1.5 MG PER DAY AT 20:00
  8. MIDODRINE [Concomitant]
     Active Substance: MIDODRINE
     Dosage: 4 MG PER DAY AT 8:30 AND 17:00
  9. FLUDROCORTISONE ACETATE [Concomitant]
     Active Substance: FLUDROCORTISONE ACETATE
     Dosage: 0.05 MG PER DAY AT 8:30 AND 17:00
  10. MAGNESIUM OXIDE [Concomitant]
     Active Substance: MAGNESIUM OXIDE
     Dosage: 1980 MG PER DAY AT 8:30, 14:00, AND 20:00
  11. ROTIGOTINE [Concomitant]
     Active Substance: ROTIGOTINE
     Dosage: 13.5 MG CONTINOUS
  12. ROTIGOTINE [Concomitant]
     Active Substance: ROTIGOTINE
     Dosage: 9 MG
     Route: 062
  13. ROTIGOTINE [Concomitant]
     Active Substance: ROTIGOTINE
     Dosage: 4.5 MG
  14. ROTIGOTINE [Concomitant]
     Active Substance: ROTIGOTINE
     Dosage: 6.75 MG

REACTIONS (2)
  - Therapeutic response shortened [Recovered/Resolved]
  - Food interaction [Unknown]
